FAERS Safety Report 13624576 (Version 1)
Quarter: 2017Q2

REPORT INFORMATION
  Report Type: Spontaneous
  Country: US (occurrence: US)
  Receive Date: 20170608
  Receipt Date: 20170608
  Transmission Date: 20170830
  Serious: No
  Sender: FDA-Public Use
  Company Number: US-PFIZER INC-2016472030

PATIENT
  Age: 64 Year
  Sex: Female
  Weight: 108.8 kg

DRUGS (1)
  1. IBRANCE [Suspect]
     Active Substance: PALBOCICLIB
     Indication: BONE CANCER
     Dosage: 125 MG, CYCLIC, (TAKE ONE DAILY FOR 21 DAYS THEN 7 DAYS OFF) (125MG 21 DAYS ON THEN 7 DAYS OFF)
     Route: 048
     Dates: start: 2016

REACTIONS (3)
  - White blood cell count decreased [Unknown]
  - Neutrophil count decreased [Unknown]
  - Product label issue [Unknown]

NARRATIVE: CASE EVENT DATE: 2016
